FAERS Safety Report 7540256-X (Version None)
Quarter: 2011Q2

REPORT INFORMATION
  Report Type: 
  Country: None (occurrence: None)
  Receive Date: 20110610
  Receipt Date: 20110530
  Transmission Date: 20111010
  Serious: Yes (Other)
  Sender: FDA-Public Use
  Company Number: PHHY2011FR47598

PATIENT
  Age: 65 Year
  Sex: Male

DRUGS (6)
  1. PREDNISONE [Suspect]
     Dosage: UNK
     Dates: start: 20060101
  2. CELLCEPT [Suspect]
     Dosage: UNK
     Dates: start: 20060101
  3. CERTICAN [Suspect]
     Dosage: UNK
     Dates: start: 20100101
  4. VFEND [Suspect]
     Dosage: UNK
     Dates: start: 20080129
  5. NEORAL [Suspect]
     Dosage: UNK
     Dates: start: 20060101, end: 20100101
  6. VFEND [Suspect]
     Dosage: 400 MG, BID
     Dates: start: 20070101

REACTIONS (4)
  - ACTINIC KERATOSIS [None]
  - ABSCESS FUNGAL [None]
  - BRONCHOPULMONARY ASPERGILLOSIS [None]
  - RENAL ABSCESS [None]
